FAERS Safety Report 7737087-4 (Version None)
Quarter: 2011Q3

REPORT INFORMATION
  Report Type: 
  Country: None (occurrence: None)
  Receive Date: 20110908
  Receipt Date: 20110906
  Transmission Date: 20111222
  Serious: Yes (Other)
  Sender: FDA-Public Use
  Company Number: US-ROCHE-458672

PATIENT
  Sex: Male
  Weight: 83 kg

DRUGS (1)
  1. ACCUTANE [Suspect]
     Route: 065
     Dates: start: 19940728, end: 19941101

REACTIONS (10)
  - COLITIS ULCERATIVE [None]
  - ARTHRITIS [None]
  - INFLAMMATORY BOWEL DISEASE [None]
  - INTESTINAL POLYP [None]
  - MASS [None]
  - ERYTHEMA [None]
  - SKIN EXFOLIATION [None]
  - BLOOD CHOLESTEROL INCREASED [None]
  - POUCHITIS [None]
  - OSTEOPENIA [None]
